FAERS Safety Report 8325797-X (Version None)
Quarter: 2012Q2

REPORT INFORMATION
  Report Type: 
  Country: None (occurrence: None)
  Receive Date: 20120501
  Receipt Date: 20120417
  Transmission Date: 20120825
  Serious: No
  Sender: FDA-Public Use
  Company Number: US-BIOGENIDEC-2012BI013455

PATIENT
  Age: 49 Year
  Sex: Female

DRUGS (3)
  1. OXYCODONE HCL [Concomitant]
     Indication: PAIN IN EXTREMITY
     Dates: start: 20020101
  2. TYSABRI [Suspect]
     Indication: MULTIPLE SCLEROSIS
     Route: 042
     Dates: start: 20120413
  3. OXYCODONE HCL [Concomitant]
     Indication: BACK PAIN
     Dates: start: 20020101

REACTIONS (5)
  - HYPERAESTHESIA [None]
  - EYE PAIN [None]
  - NASAL CONGESTION [None]
  - OROPHARYNGEAL PAIN [None]
  - ASTHENIA [None]
